FAERS Safety Report 24714829 (Version 1)
Quarter: 2024Q4

REPORT INFORMATION
  Report Type: Spontaneous
  Country: ES (occurrence: ES)
  Receive Date: 20241210
  Receipt Date: 20241210
  Transmission Date: 20250114
  Serious: Yes (Other)
  Sender: ALEXION PHARMACEUTICALS
  Company Number: None

PATIENT
  Age: 76 Year

DRUGS (18)
  1. ROSUVASTATIN [Suspect]
     Active Substance: ROSUVASTATIN
     Indication: Dyslipidaemia
     Dosage: 10 MILLIGRAM, 1/DAY
  2. ROSUVASTATIN [Suspect]
     Active Substance: ROSUVASTATIN
     Dosage: 10 MILLIGRAM, 1/DAY
     Route: 048
  3. ROSUVASTATIN [Suspect]
     Active Substance: ROSUVASTATIN
     Dosage: 10 MILLIGRAM, 1/DAY
  4. ROSUVASTATIN [Suspect]
     Active Substance: ROSUVASTATIN
     Dosage: 10 MILLIGRAM, 1/DAY
     Route: 048
  5. ENALAPRIL/HYDROCHLOROTHIAZIDE SANDOZ [Concomitant]
     Indication: Essential hypertension
     Dosage: 1 DOSAGE FORM, 1/DAY
  6. ENALAPRIL/HYDROCHLOROTHIAZIDE SANDOZ [Concomitant]
     Dosage: 1 DOSAGE FORM, 1/DAY
     Route: 048
  7. ENALAPRIL/HYDROCHLOROTHIAZIDE SANDOZ [Concomitant]
     Dosage: 1 DOSAGE FORM, 1/DAY
  8. ENALAPRIL/HYDROCHLOROTHIAZIDE SANDOZ [Concomitant]
     Dosage: 1 DOSAGE FORM, 1/DAY
     Route: 048
  9. LANSOPRAZOLE [Concomitant]
     Active Substance: LANSOPRAZOLE
     Indication: Prophylaxis against gastrointestinal ulcer
     Dosage: 30 MILLIGRAM, 1/DAY
  10. LANSOPRAZOLE [Concomitant]
     Active Substance: LANSOPRAZOLE
     Dosage: 30 MILLIGRAM, 1/DAY
     Route: 048
  11. LANSOPRAZOLE [Concomitant]
     Active Substance: LANSOPRAZOLE
     Dosage: 30 MILLIGRAM, 1/DAY
  12. LANSOPRAZOLE [Concomitant]
     Active Substance: LANSOPRAZOLE
     Dosage: 30 MILLIGRAM, 1/DAY
     Route: 048
  13. ASPIRIN [Concomitant]
     Active Substance: ASPIRIN
     Indication: Thrombosis prophylaxis
     Dosage: 100 MILLIGRAM, 1/DAY
  14. ASPIRIN [Concomitant]
     Active Substance: ASPIRIN
     Dosage: 100 MILLIGRAM, 1/DAY
     Route: 048
  15. ASPIRIN [Concomitant]
     Active Substance: ASPIRIN
     Dosage: 100 MILLIGRAM, 1/DAY
  16. ASPIRIN [Concomitant]
     Active Substance: ASPIRIN
     Dosage: 100 MILLIGRAM, 1/DAY
     Route: 048
  17. Voltadol [Concomitant]
     Indication: Arthralgia
     Dosage: UNK
     Route: 061
  18. Voltadol [Concomitant]
     Dosage: UNK

REACTIONS (5)
  - Myalgia [Recovering/Resolving]
  - Asthenia [Recovering/Resolving]
  - Abdominal pain [Recovering/Resolving]
  - Hypercreatinaemia [Recovering/Resolving]
  - Blood creatine phosphokinase increased [Recovering/Resolving]
